FAERS Safety Report 7824344-6 (Version None)
Quarter: 2011Q4

REPORT INFORMATION
  Report Type: 
  Country: None (occurrence: None)
  Receive Date: 20111019
  Receipt Date: 20111017
  Transmission Date: 20120403
  Serious: Yes (Hospitalization)
  Sender: FDA-Public Use
  Company Number: CA-BRISTOL-MYERS SQUIBB COMPANY-14123475

PATIENT
  Sex: Male
  Weight: 72 kg

DRUGS (9)
  1. AVELOX [Concomitant]
  2. OXYCONTIN [Concomitant]
  3. CISPLATIN [Suspect]
     Indication: HEAD AND NECK CANCER
  4. LACTULOSE [Concomitant]
  5. CIPROFLOXACIN [Concomitant]
  6. VANCOMYCIN HCL [Concomitant]
     Route: 042
  7. NEUPOGEN [Concomitant]
  8. ERBITUX [Suspect]
     Indication: HEAD AND NECK CANCER
     Dates: start: 20080229, end: 20080304
  9. OXYCODONE HCL [Concomitant]

REACTIONS (9)
  - DEHYDRATION [None]
  - DYSPHAGIA [None]
  - RADIATION SKIN INJURY [None]
  - WHITE BLOOD CELL COUNT DECREASED [None]
  - PHARYNGEAL INFLAMMATION [None]
  - LYMPHOPENIA [None]
  - GRANULOCYTE COUNT DECREASED [None]
  - STOMATITIS [None]
  - HYPONATRAEMIA [None]
